FAERS Safety Report 18952902 (Version 3)
Quarter: 2021Q3

REPORT INFORMATION
  Report Type: Report from Study
  Country: CR (occurrence: CR)
  Receive Date: 20210301
  Receipt Date: 20210802
  Transmission Date: 20211014
  Serious: Yes (Other)
  Sender: FDA-Public Use
  Company Number: NVSC2021CR040733

PATIENT
  Sex: Male

DRUGS (2)
  1. SCAPHO [Suspect]
     Active Substance: SECUKINUMAB
     Indication: PSORIASIS
     Dosage: 150 MG, QMO (BENEATH THE SKIN, USUALLY VIA INJECTION)
     Route: 058
     Dates: start: 20201120
  2. SCAPHO [Suspect]
     Active Substance: SECUKINUMAB
     Indication: ANKYLOSING SPONDYLITIS

REACTIONS (17)
  - Renal disorder [Unknown]
  - Back pain [Recovering/Resolving]
  - Pruritus [Recovered/Resolved]
  - General physical health deterioration [Unknown]
  - Burning sensation [Unknown]
  - Therapeutic product effect incomplete [Unknown]
  - Hypersensitivity [Unknown]
  - Infarction [Recovered/Resolved]
  - Cerebral disorder [Unknown]
  - Visual impairment [Unknown]
  - Scratch [Unknown]
  - Influenza [Unknown]
  - Inappropriate schedule of product administration [Recovering/Resolving]
  - Pain [Recovering/Resolving]
  - Arthralgia [Recovering/Resolving]
  - Psoriasis [Recovering/Resolving]
  - Renal impairment [Recovering/Resolving]
